FAERS Safety Report 5323958-5 (Version None)
Quarter: 2007Q2

REPORT INFORMATION
  Report Type: 
  Country: None (occurrence: None)
  Receive Date: 20070509
  Receipt Date: 20070509
  Transmission Date: 20071010
  Serious: Yes (Hospitalization)
  Sender: FDA-Public Use
  Company Number: None

PATIENT
  Sex: Female
  Weight: 48 kg

DRUGS (19)
  1. IRINOTECAN HCL [Suspect]
     Indication: GLIOBLASTOMA MULTIFORME
     Dosage: 125MG/M2 DAY 1, 8, 22, 29 IV
     Route: 042
     Dates: start: 20070326
  2. IRINOTECAN HCL [Suspect]
     Indication: GLIOBLASTOMA MULTIFORME
     Dosage: 125MG/M2 DAY 1, 8, 22, 29 IV
     Route: 042
     Dates: start: 20070402
  3. IRINOTECAN HCL [Suspect]
     Indication: GLIOBLASTOMA MULTIFORME
     Dosage: 125MG/M2 DAY 1, 8, 22, 29 IV
     Route: 042
     Dates: start: 20070416
  4. IRINOTECAN HCL [Suspect]
     Indication: GLIOBLASTOMA MULTIFORME
     Dosage: 125MG/M2 DAY 1, 8, 22, 29 IV
     Route: 042
     Dates: start: 20070423
  5. TEMODAR [Suspect]
     Indication: GLIOBLASTOMA MULTIFORME
     Dosage: 200MG/M2 DAYS 1-5 PO
     Route: 048
     Dates: start: 20070326, end: 20070330
  6. NEXIUM [Concomitant]
  7. PREMARIN [Concomitant]
  8. ALLEGRA [Concomitant]
  9. LOTREL [Concomitant]
  10. TOPROL-XL [Concomitant]
  11. LYRICA [Concomitant]
  12. DECADRON [Concomitant]
  13. PHENERGAN HCL [Concomitant]
  14. MOTRIN [Concomitant]
  15. OXYCODONE HCL [Concomitant]
  16. LIPITOR [Concomitant]
  17. TYLENOL [Concomitant]
  18. COLACE [Concomitant]
  19. OS-CAL [Concomitant]

REACTIONS (6)
  - CONFUSIONAL STATE [None]
  - HYPERGLYCAEMIA [None]
  - HYPONATRAEMIA [None]
  - LEUKOPENIA [None]
  - THROMBOCYTOPENIA [None]
  - WHITE BLOOD CELL COUNT DECREASED [None]
